FAERS Safety Report 7774899-5 (Version None)
Quarter: 2011Q3

REPORT INFORMATION
  Report Type: 
  Country: None (occurrence: None)
  Receive Date: 20110923
  Receipt Date: 20110921
  Transmission Date: 20111222
  Serious: Yes (Other)
  Sender: FDA-Public Use
  Company Number: CHPA2011JP10408

PATIENT
  Age: 34 Year
  Sex: Male

DRUGS (4)
  1. LAMISIL [Suspect]
     Indication: ATOPY
     Dosage: UNK, UNK
     Route: 061
     Dates: start: 20110716, end: 20110728
  2. SELBEX [Concomitant]
     Dosage: UNK, UNK
     Route: 048
  3. ACUATIM [Suspect]
     Indication: ATOPY
     Dosage: UNK, UNK
     Route: 061
     Dates: start: 20110716, end: 20110728
  4. LOXONIN [Concomitant]
     Dosage: UNK, UNK
     Route: 048

REACTIONS (2)
  - PHOTOSENSITIVITY REACTION [None]
  - OFF LABEL USE [None]
